FAERS Safety Report 18961722 (Version 1)
Quarter: 2021Q1

REPORT INFORMATION
  Report Type: Spontaneous
  Country: ES (occurrence: ES)
  Receive Date: 20210303
  Receipt Date: 20210303
  Transmission Date: 20210420
  Serious: Yes (Life-Threatening, Hospitalization, Disabling)
  Sender: FDA-Public Use
  Company Number: ES-NOVOPROD-791558

PATIENT
  Age: 83 Year
  Sex: Female
  Weight: 52 kg

DRUGS (2)
  1. CLEXANE [Interacting]
     Active Substance: ENOXAPARIN SODIUM
     Indication: ANTICOAGULANT THERAPY
     Dosage: 6.000 IU (60 MG)/ 0,6 ML (INJECTION IN THE MORNING)
     Route: 058
     Dates: start: 20201126, end: 20210121
  2. NOVOMIX 30 FLEXPEN [Suspect]
     Active Substance: INSULIN ASPART
     Indication: DIABETES MELLITUS
     Dosage: 34 IU, QD (16?0?18)
     Route: 058
     Dates: start: 20201207, end: 20201209

REACTIONS (1)
  - Cerebrovascular accident [Recovered/Resolved with Sequelae]

NARRATIVE: CASE EVENT DATE: 20201209
